FAERS Safety Report 16029764 (Version 3)
Quarter: 2020Q3

REPORT INFORMATION
  Report Type: Report from Study
  Country: DE (occurrence: DE)
  Receive Date: 20190304
  Receipt Date: 20190510
  Transmission Date: 20201105
  Serious: Yes (Hospitalization)
  Sender: FDA-Public Use
  Company Number: DE-JNJFOC-20190238708

PATIENT
  Age: 6 Decade
  Sex: Female

DRUGS (6)
  1. TRABECTEDIN [Suspect]
     Active Substance: TRABECTEDIN
     Indication: FALLOPIAN TUBE CANCER
     Dosage: CYCLE 1 TO 3, ??DOSE OF START DATE: 2.2 MG
     Route: 042
     Dates: start: 20181227, end: 20190208
  2. TRABECTEDIN [Suspect]
     Active Substance: TRABECTEDIN
     Indication: MALIGNANT PERITONEAL NEOPLASM
     Dosage: CYCLE 1 TO 3, ??DOSE OF START DATE: 2.2 MG
     Route: 042
     Dates: start: 20181227, end: 20190208
  3. PLD [Suspect]
     Active Substance: DOXORUBICIN HYDROCHLORIDE
     Indication: MALIGNANT PERITONEAL NEOPLASM
     Dosage: CYCLE 1 TO 3, ??DOSE OF START DATE: 60 MG
     Route: 042
     Dates: start: 20181227, end: 20190208
  4. TRABECTEDIN [Suspect]
     Active Substance: TRABECTEDIN
     Indication: OVARIAN CANCER RECURRENT
     Dosage: CYCLE 1 TO 3, ??DOSE OF START DATE: 2.2 MG
     Route: 042
     Dates: start: 20181227, end: 20190208
  5. PLD [Suspect]
     Active Substance: DOXORUBICIN HYDROCHLORIDE
     Indication: OVARIAN CANCER RECURRENT
     Dosage: CYCLE 1 TO 3, ??DOSE OF START DATE: 60 MG
     Route: 042
     Dates: start: 20181227, end: 20190208
  6. PLD [Suspect]
     Active Substance: DOXORUBICIN HYDROCHLORIDE
     Indication: FALLOPIAN TUBE CANCER
     Dosage: CYCLE 1 TO 3, ??DOSE OF START DATE: 60 MG
     Route: 042
     Dates: start: 20181227, end: 20190208

REACTIONS (1)
  - Pharyngitis [Recovered/Resolved]

NARRATIVE: CASE EVENT DATE: 20190225
